FAERS Safety Report 6034801-3 (Version None)
Quarter: 2009Q1

REPORT INFORMATION
  Report Type: 
  Country: None (occurrence: None)
  Receive Date: 20090112
  Receipt Date: 20090105
  Transmission Date: 20090719
  Serious: No
  Sender: FDA-Public Use
  Company Number: BE-ELI_LILLY_AND_COMPANY-BE200811003622

PATIENT
  Sex: Male

DRUGS (4)
  1. ZYPREXA [Suspect]
     Indication: PSYCHOTIC DISORDER
     Dosage: 30 MG, DAILY (1/D)
     Route: 048
     Dates: start: 20080712, end: 20080721
  2. ZYPREXA [Suspect]
     Dosage: 30 MG, DAILY (1/D)
     Route: 048
     Dates: start: 20080722, end: 20080908
  3. CLOPIXOL [Concomitant]
  4. TEMESTA [Concomitant]
     Indication: ANXIETY
     Dosage: UNK, UNK
     Dates: start: 20080731, end: 20080824

REACTIONS (2)
  - AKATHISIA [None]
  - OVERDOSE [None]
